FAERS Safety Report 11415722 (Version 1)
Quarter: 2015Q3

REPORT INFORMATION
  Report Type: Spontaneous
  Country: FR (occurrence: FR)
  Receive Date: 20150825
  Receipt Date: 20150825
  Transmission Date: 20151125
  Serious: Yes (Death)
  Sender: FDA-Public Use
  Company Number: FR-SA-2015SA127498

PATIENT
  Age: 63 Year
  Sex: Male

DRUGS (15)
  1. LOVENOX [Suspect]
     Active Substance: ENOXAPARIN SODIUM
     Indication: PROPHYLAXIS
     Route: 058
     Dates: start: 20150722, end: 20150722
  2. FRAGMIN [Suspect]
     Active Substance: DALTEPARIN SODIUM
     Indication: PROPHYLAXIS
     Route: 058
     Dates: start: 20150723, end: 20150729
  3. SULFARLEM [Concomitant]
     Active Substance: ANETHOLTRITHION
  4. OXYNORM [Concomitant]
     Active Substance: OXYCODONE HYDROCHLORIDE
  5. FRAGMIN [Suspect]
     Active Substance: DALTEPARIN SODIUM
     Indication: PROPHYLAXIS
     Route: 058
     Dates: start: 20150706, end: 20150715
  6. INNOHEP [Suspect]
     Active Substance: TINZAPARIN SODIUM
     Indication: DEEP VEIN THROMBOSIS
     Route: 058
     Dates: start: 20150721, end: 20150721
  7. MOVICOL [Concomitant]
     Active Substance: POLYETHYLENE GLYCOL 3350\POTASSIUM CHLORIDE\SODIUM BICARBONATE\SODIUM CHLORIDE
  8. DOLIPRANE [Concomitant]
     Active Substance: ACETAMINOPHEN
  9. CORTANCYL [Concomitant]
     Active Substance: PREDNISONE
  10. SERESTA [Concomitant]
     Active Substance: OXAZEPAM
  11. ABSTRAL [Concomitant]
     Active Substance: FENTANYL CITRATE
     Route: 060
  12. PANTOPRAZOLE [Concomitant]
     Active Substance: PANTOPRAZOLE SODIUM
  13. OXYCONTIN [Concomitant]
     Active Substance: OXYCODONE HYDROCHLORIDE
  14. INNOHEP [Suspect]
     Active Substance: TINZAPARIN SODIUM
     Indication: DEEP VEIN THROMBOSIS
     Route: 058
     Dates: start: 20150730, end: 20150731
  15. ATARAX [Concomitant]
     Active Substance: HYDROXYZINE\HYDROXYZINE HYDROCHLORIDE

REACTIONS (2)
  - Heparin-induced thrombocytopenia [Fatal]
  - Pulmonary embolism [Fatal]

NARRATIVE: CASE EVENT DATE: 20150721
